FAERS Safety Report 10332314 (Version 1)
Quarter: 2014Q3

REPORT INFORMATION
  Report Type: Spontaneous
  Country: US (occurrence: US)
  Receive Date: 20140722
  Receipt Date: 20140722
  Transmission Date: 20150326
  Serious: No
  Sender: FDA-Public Use
  Company Number: US-ASTRAZENECA-2014SE31106

PATIENT
  Age: 22 Year
  Sex: Female
  Weight: 54.9 kg

DRUGS (2)
  1. SEROQUEL [Suspect]
     Active Substance: QUETIAPINE FUMARATE
     Indication: BIPOLAR DISORDER
     Route: 048
     Dates: start: 2002, end: 20140418
  2. LITHIUM [Concomitant]
     Active Substance: LITHIUM CARBONATE

REACTIONS (9)
  - Cold sweat [Unknown]
  - Insomnia [Unknown]
  - Disturbance in attention [Unknown]
  - Pruritus [Unknown]
  - Tremor [Unknown]
  - Asthenia [Unknown]
  - Trismus [Unknown]
  - Fatigue [Unknown]
  - Vision blurred [Unknown]

NARRATIVE: CASE EVENT DATE: 20140419
